FAERS Safety Report 7110288-4 (Version None)
Quarter: 2010Q4

REPORT INFORMATION
  Report Type: 
  Country: None (occurrence: None)
  Receive Date: 20101117
  Receipt Date: 20101117
  Transmission Date: 20110411
  Serious: Yes (Other)
  Sender: FDA-Public Use
  Company Number: None

PATIENT
  Sex: Male
  Weight: 83.9154 kg

DRUGS (1)
  1. SYNTHROID [Suspect]
     Dosage: .137 ONCE DAY ORAL
     Route: 048
     Dates: start: 19800101, end: 20100101

REACTIONS (11)
  - ALOPECIA [None]
  - ARTHRALGIA [None]
  - ATRIAL FIBRILLATION [None]
  - DEPRESSION [None]
  - DRY SKIN [None]
  - GASTROINTESTINAL DISORDER [None]
  - MYALGIA [None]
  - NERVOUSNESS [None]
  - PALPITATIONS [None]
  - TEMPERATURE INTOLERANCE [None]
  - TREMOR [None]
